FAERS Safety Report 16466187 (Version 2)
Quarter: 2019Q3

REPORT INFORMATION
  Report Type: Spontaneous
  Country: US (occurrence: US)
  Receive Date: 20190621
  Receipt Date: 20190924
  Transmission Date: 20191004
  Serious: No
  Sender: FDA-Public Use
  Company Number: US-ACORDA-ACO_159395_2019

PATIENT
  Age: 71 Year
  Sex: Male
  Weight: 73.47 kg

DRUGS (2)
  1. RYTARY [Concomitant]
     Active Substance: CARBIDOPA\LEVODOPA
     Indication: PRODUCT USED FOR UNKNOWN INDICATION
     Dosage: UNK
     Route: 065
  2. INBRIJA [Suspect]
     Active Substance: LEVODOPA
     Indication: PARKINSON^S DISEASE
     Dosage: 84 MILLIGRAM, PRN

REACTIONS (4)
  - Wrong technique in product usage process [Recovered/Resolved]
  - Therapeutic product effect decreased [Recovered/Resolved]
  - Device issue [Recovered/Resolved]
  - Foreign body in gastrointestinal tract [Unknown]

NARRATIVE: CASE EVENT DATE: 20190617
